FAERS Safety Report 16089344 (Version 1)
Quarter: 2019Q1

REPORT INFORMATION
  Report Type: Spontaneous
  Country: US (occurrence: US)
  Receive Date: 20190319
  Receipt Date: 20190319
  Transmission Date: 20190418
  Serious: Yes (Other)
  Sender: FDA-Public Use
  Company Number: US-PFIZER INC-2019114182

PATIENT
  Age: 20 Year
  Sex: Female

DRUGS (3)
  1. LIALDA [Concomitant]
     Active Substance: MESALAMINE
     Dosage: 4.8 G, DAILY
  2. XELJANZ [Suspect]
     Active Substance: TOFACITINIB CITRATE
     Dosage: 10 MG, 2X/DAY
  3. IRON [Concomitant]
     Active Substance: IRON
     Dosage: DAILY
     Route: 048

REACTIONS (4)
  - Frequent bowel movements [Unknown]
  - Abdominal pain [Unknown]
  - Constipation [Unknown]
  - Haematochezia [Unknown]
